FAERS Safety Report 5025396-1 (Version None)
Quarter: 2006Q2

REPORT INFORMATION
  Report Type: 
  Country: None (occurrence: None)
  Receive Date: 20060608
  Receipt Date: 20060523
  Transmission Date: 20061013
  Serious: Yes (Other)
  Sender: FDA-Public Use
  Company Number: RENA-11776

PATIENT
  Age: 73 Year
  Sex: Male

DRUGS (1)
  1. RENAGEL [Suspect]
     Indication: HYPERPHOSPHATAEMIA
     Dosage: 4 G DAILY PO
     Route: 048
     Dates: start: 20050501

REACTIONS (7)
  - BLOOD SODIUM ABNORMAL [None]
  - COMPLICATIONS OF TRANSPLANTED KIDNEY [None]
  - CONVULSION [None]
  - GRAND MAL CONVULSION [None]
  - HAEMODIALYSIS [None]
  - HERNIA REPAIR [None]
  - POST PROCEDURAL COMPLICATION [None]
